FAERS Safety Report 5016315-2 (Version None)
Quarter: 2006Q2

REPORT INFORMATION
  Report Type: 
  Country: None (occurrence: None)
  Receive Date: 20060525
  Receipt Date: 20060509
  Transmission Date: 20061013
  Serious: Yes (Hospitalization, Other)
  Sender: FDA-Public Use
  Company Number: FR200605001961

PATIENT
  Age: 68 Year
  Sex: Male
  Weight: 52 kg

DRUGS (6)
  1. GEMZAR [Suspect]
     Indication: SQUAMOUS CELL CARCINOMA
     Dosage: INTRAVENOUS
     Route: 042
     Dates: start: 20051001, end: 20060130
  2. CISPLATIN [Concomitant]
  3. PHOSPHALUGEL (ALUMINIUM PHOSPHATE GEL) [Concomitant]
  4. TARDYFERON /GFR/ (FERROUS SULFATE) [Concomitant]
  5. INNOHEP [Concomitant]
  6. MOTILIUM [Concomitant]

REACTIONS (8)
  - DRUG TOXICITY [None]
  - DUODENITIS [None]
  - GENERAL PHYSICAL HEALTH DETERIORATION [None]
  - NAUSEA [None]
  - NEUTROPENIA [None]
  - RENAL FAILURE [None]
  - VOMITING [None]
  - WEIGHT DECREASED [None]
